FAERS Safety Report 16528897 (Version 6)
Quarter: 2020Q4

REPORT INFORMATION
  Report Type: Spontaneous
  Country: BR (occurrence: BR)
  Receive Date: 20190703
  Receipt Date: 20201028
  Transmission Date: 20210113
  Serious: Yes (Life-Threatening, Hospitalization, Other)
  Sender: FDA-Public Use
  Company Number: BR-BIOMARINAP-BR-2019-124500

PATIENT
  Age: 20 Year
  Sex: Female
  Weight: 46.9 kg

DRUGS (1)
  1. NAGLAZYME [Suspect]
     Active Substance: GALSULFASE
     Indication: MUCOPOLYSACCHARIDOSIS VI
     Dosage: 53 MILLIGRAM, QW
     Route: 042
     Dates: start: 20190502

REACTIONS (13)
  - Hydrocephalus [Not Recovered/Not Resolved]
  - Asthenia [Recovered/Resolved]
  - Swelling [Recovering/Resolving]
  - Product dose omission issue [Unknown]
  - Cerebrospinal fluid leakage [Recovering/Resolving]
  - Headache [Unknown]
  - Swelling face [Recovering/Resolving]
  - Seizure [Unknown]
  - Crying [Recovering/Resolving]
  - Vomiting [Recovering/Resolving]
  - Fall [Recovered/Resolved]
  - Pain [Recovered/Resolved]
  - Mobility decreased [Recovered/Resolved]

NARRATIVE: CASE EVENT DATE: 20190623
